FAERS Safety Report 15422147 (Version 2)
Quarter: 2018Q4

REPORT INFORMATION
  Report Type: Spontaneous
  Country: US (occurrence: US)
  Receive Date: 20180924
  Receipt Date: 20181105
  Transmission Date: 20190204
  Serious: Yes (Other)
  Sender: FDA-Public Use
  Company Number: US-GLAXOSMITHKLINE-US2018171884

PATIENT
  Sex: Female
  Weight: 76 kg

DRUGS (1)
  1. NUCALA [Suspect]
     Active Substance: MEPOLIZUMAB
     Indication: PRODUCT USED FOR UNKNOWN INDICATION
     Dosage: UNK UNK, U
     Route: 058
     Dates: start: 201803

REACTIONS (2)
  - Macular degeneration [Unknown]
  - Visual impairment [Unknown]

NARRATIVE: CASE EVENT DATE: 2018
